FAERS Safety Report 10251828 (Version 2)
Quarter: 2014Q2

REPORT INFORMATION
  Report Type: Spontaneous
  Country: US (occurrence: US)
  Receive Date: 20140623
  Receipt Date: 20140623
  Transmission Date: 20141212
  Serious: No
  Sender: FDA-Public Use
  Company Number: US-ASTRAZENECA-2014SE40113

PATIENT
  Age: 56 Year
  Sex: Male
  Weight: 77.1 kg

DRUGS (1)
  1. QUETIAPINE [Suspect]
     Indication: INSOMNIA
     Route: 048
     Dates: start: 201311

REACTIONS (3)
  - Adverse event [Unknown]
  - Alopecia [Unknown]
  - Off label use [Unknown]
